FAERS Safety Report 10168519 (Version 1)
Quarter: 2014Q2

REPORT INFORMATION
  Report Type: Spontaneous
  Country: US (occurrence: US)
  Receive Date: 20140513
  Receipt Date: 20140513
  Transmission Date: 20141212
  Serious: Yes (Other)
  Sender: FDA-Public Use
  Company Number: US-PFIZER INC-2014127637

PATIENT
  Age: 53 Year
  Sex: Male

DRUGS (4)
  1. SUTENT [Suspect]
     Indication: RENAL CANCER
     Dosage: UNK
     Dates: start: 20140307
  2. HYDROCHLOROTHIAZIDE [Concomitant]
     Dosage: UNK
  3. FLUTICASONE PROPIONATE [Concomitant]
     Dosage: UNK
  4. ASPIRIN CHILDRENS [Concomitant]
     Dosage: UNK

REACTIONS (1)
  - Limb injury [Unknown]
